FAERS Safety Report 4332831-0 (Version None)
Quarter: 2004Q1

REPORT INFORMATION
  Report Type: 
  Country: None (occurrence: None)
  Receive Date: 20040330
  Receipt Date: 20040311
  Transmission Date: 20041129
  Serious: Yes (Hospitalization)
  Sender: FDA-Public Use
  Company Number: A02200400913

PATIENT
  Age: 85 Year
  Sex: Male

DRUGS (4)
  1. ZOLPIDEM TARTRATE [Suspect]
     Dosage: 5 MG, OD, ORAL
     Route: 048
  2. SINEMET [Suspect]
     Dosage: 110 MG, BID, ORAL
     Route: 048
  3. ZYPREXA [Suspect]
     Dosage: 1 DF OD, ORAL
     Route: 048
  4. MOTILIUM [Suspect]
     Dosage: 10 MG TID, ORAL
     Route: 048

REACTIONS (2)
  - EXTRAPYRAMIDAL DISORDER [None]
  - SOMNOLENCE [None]
